FAERS Safety Report 22186537 (Version 1)
Quarter: 2023Q2

REPORT INFORMATION
  Report Type: Spontaneous
  Country: US (occurrence: None)
  Receive Date: 20230407
  Receipt Date: 20230407
  Transmission Date: 20230722
  Serious: Yes (Other)
  Sender: FDA-Public Use
  Company Number: None

PATIENT
  Age: 64 Year
  Sex: Female
  Weight: 96.3 kg

DRUGS (18)
  1. CONTRAVE [Suspect]
     Active Substance: BUPROPION HYDROCHLORIDE\NALTREXONE HYDROCHLORIDE
     Indication: Weight decreased
     Dosage: OTHER QUANTITY : 120 CAPSULE(S);?OTHER FREQUENCY : 2 TABLETS TWICE A;?
     Route: 048
     Dates: start: 20230227, end: 20230402
  2. LOSARTAN [Concomitant]
  3. LEVOTHYROXINE [Concomitant]
  4. DICLOFENAC [Concomitant]
     Active Substance: DICLOFENAC
  5. CLONAZEPAN [Concomitant]
  6. escitalprolam [Concomitant]
  7. CONTRAVE [Concomitant]
     Active Substance: BUPROPION HYDROCHLORIDE\NALTREXONE HYDROCHLORIDE
  8. VITAMINS [Concomitant]
     Active Substance: VITAMINS
  9. Vitamin C [Concomitant]
  10. VITAMIN D3 [Concomitant]
     Active Substance: CHOLECALCIFEROL
  11. IRON [Concomitant]
  12. VITAMIN B12 [Concomitant]
     Active Substance: CYANOCOBALAMIN
  13. BIOTIN [Concomitant]
  14. Estroven complete [Concomitant]
  15. SILICON DIOXIDE [Concomitant]
     Active Substance: SILICON DIOXIDE
  16. MAGNESIUM [Concomitant]
  17. STOOL SOFTENER (DOCUSATE) [Concomitant]
     Active Substance: DOCUSATE
  18. KRILL OIL [Concomitant]
     Active Substance: DIETARY SUPPLEMENT\KRILL OIL

REACTIONS (6)
  - Panic attack [None]
  - Withdrawal syndrome [None]
  - Anxiety [None]
  - Insomnia [None]
  - Fear [None]
  - Illness [None]

NARRATIVE: CASE EVENT DATE: 20230402
